FAERS Safety Report 15847101 (Version 3)
Quarter: 2019Q1

REPORT INFORMATION
  Report Type: Spontaneous
  Country: PT (occurrence: PT)
  Receive Date: 20190121
  Receipt Date: 20190215
  Transmission Date: 20190417
  Serious: Yes (Life-Threatening, Hospitalization, Other)
  Sender: FDA-Public Use
  Company Number: PT-AUROBINDO-AUR-APL-2019-001634

PATIENT

DRUGS (2)
  1. AMLODIPINE [Suspect]
     Active Substance: AMLODIPINE BESYLATE
     Indication: BEHAVIORAL ADDICTION
     Dosage: UNK, VOLUNTARY INTOXICATION WITH 70MG
     Route: 065
  2. AMLODIPINE [Suspect]
     Active Substance: AMLODIPINE BESYLATE
     Dosage: 70 MILLIGRAM, 70 MG TOTAL
     Route: 065

REACTIONS (13)
  - Metabolic acidosis [Recovered/Resolved]
  - Hypotension [Recovered/Resolved]
  - Coma [Recovered/Resolved]
  - Tachypnoea [Recovered/Resolved]
  - Neutrophilia [Recovered/Resolved]
  - Toxicity to various agents [Recovered/Resolved]
  - Hypoinsulinaemia [Unknown]
  - Myocardial depression [Unknown]
  - Tachycardia [Recovered/Resolved]
  - Haemodynamic instability [Recovered/Resolved]
  - Intentional overdose [Unknown]
  - Leukocytosis [Recovered/Resolved]
  - Conduction disorder [Unknown]
